FAERS Safety Report 15404504 (Version 2)
Quarter: 2018Q4

REPORT INFORMATION
  Report Type: Report from Study
  Country: US (occurrence: US)
  Receive Date: 20180919
  Receipt Date: 20181002
  Transmission Date: 20190204
  Serious: Yes (Hospitalization)
  Sender: FDA-Public Use
  Company Number: US-ACTELION-A-US2016-144429

PATIENT
  Age: 38 Year
  Sex: Female
  Weight: 79.82 kg

DRUGS (7)
  1. VELETRI [Suspect]
     Active Substance: EPOPROSTENOL
     Dosage: 9 NG/KG, PER MIN
     Route: 042
  2. LETAIRIS [Concomitant]
     Active Substance: AMBRISENTAN
     Dosage: 10 MG, QD
  3. VELETRI [Suspect]
     Active Substance: EPOPROSTENOL
     Indication: PULMONARY HYPERTENSION
     Dosage: 29 NG/KG, PER MIN
     Route: 042
     Dates: start: 20161012
  4. ADCIRCA [Concomitant]
     Active Substance: TADALAFIL
  5. VELETRI [Suspect]
     Active Substance: EPOPROSTENOL
     Dosage: 5 NG/KG, PER MIN
     Route: 042
     Dates: start: 20161014
  6. MYCOPHENOLATE [Concomitant]
     Active Substance: MYCOPHENOLIC ACID
     Indication: IMMUNOSUPPRESSION
  7. HYDROXYCHLOROQUINE [Concomitant]
     Active Substance: HYDROXYCHLOROQUINE
     Indication: IMMUNOSUPPRESSION

REACTIONS (21)
  - Rash macular [Unknown]
  - Abscess [Not Recovered/Not Resolved]
  - Device malfunction [Recovered/Resolved]
  - Fluid retention [Unknown]
  - Device occlusion [Recovered/Resolved]
  - Flushing [Unknown]
  - Catheter site haemorrhage [Unknown]
  - Skin irritation [Unknown]
  - Catheter site infection [Not Recovered/Not Resolved]
  - Nausea [Recovered/Resolved]
  - Erythema [Unknown]
  - Device alarm issue [Recovered/Resolved]
  - Dyspnoea [Unknown]
  - Swelling [Unknown]
  - Headache [Unknown]
  - Device breakage [Unknown]
  - Catheter culture positive [Not Recovered/Not Resolved]
  - Catheter management [Unknown]
  - Pain in jaw [Unknown]
  - Pallor [Unknown]
  - Staphylococcal infection [Not Recovered/Not Resolved]

NARRATIVE: CASE EVENT DATE: 20161022
